FAERS Safety Report 19622326 (Version 1)
Quarter: 2021Q3

REPORT INFORMATION
  Report Type: Spontaneous
  Country: US (occurrence: US)
  Receive Date: 20210728
  Receipt Date: 20210728
  Transmission Date: 20211014
  Serious: Yes (Other)
  Sender: FDA-Public Use
  Company Number: US-ALS-000340

PATIENT
  Age: 64 Year
  Sex: Female

DRUGS (2)
  1. QUETIAPINE. [Suspect]
     Active Substance: QUETIAPINE
     Indication: PRODUCT USED FOR UNKNOWN INDICATION
     Dosage: 8.7 G, EXTENDED RELEASE
     Route: 065
  2. DOXYCYCLINE. [Suspect]
     Active Substance: DOXYCYCLINE
     Indication: PNEUMONIA
     Route: 065

REACTIONS (7)
  - Overdose [Unknown]
  - Endotracheal intubation [Unknown]
  - Delirium [Unknown]
  - Cognitive disorder [Unknown]
  - Toxic encephalopathy [Unknown]
  - Hypotension [Unknown]
  - Unresponsive to stimuli [Unknown]
